FAERS Safety Report 8906458 (Version 1)
Quarter: 2012Q4

REPORT INFORMATION
  Report Type: Spontaneous
  Country: DK (occurrence: None)
  Receive Date: 20121108
  Receipt Date: 20121108
  Transmission Date: 20130627
  Serious: Yes (Other)
  Sender: FDA-Public Use
  Company Number: 2012MA013037

PATIENT
  Age: 68 Year
  Sex: Male

DRUGS (4)
  1. IRINOTECAN HYDROCHLORIDE [Suspect]
  2. ELOXATIN [Suspect]
     Indication: METASTATIC COLORECTAL CANCER
     Dates: start: 20080910, end: 20090303
  3. FLUOROURACIL (FLUOROURACIL) [Suspect]
     Indication: METASTATIC COLORECTAL CANCER
  4. CALCIUM FOLINATE [Suspect]

REACTIONS (5)
  - Urinary tract infection [None]
  - Hypersensitivity [None]
  - Neuropathy peripheral [None]
  - Fatigue [None]
  - Flushing [None]
